FAERS Safety Report 22374628 (Version 1)
Quarter: 2023Q2

REPORT INFORMATION
  Report Type: Spontaneous
  Country: CA (occurrence: CA)
  Receive Date: 20230526
  Receipt Date: 20230526
  Transmission Date: 20230722
  Serious: Yes (Hospitalization, Other)
  Sender: FDA-Public Use
  Company Number: CA-HLS-202301107

PATIENT
  Sex: Female

DRUGS (9)
  1. CLOZAPINE [Suspect]
     Active Substance: CLOZAPINE
     Indication: Schizophrenia
     Dosage: TABLETS DOSAGE FORM
     Route: 048
  2. BENZTROPINE [Suspect]
     Active Substance: BENZTROPINE
     Indication: Extrapyramidal disorder
     Dosage: 3 EVERY 1 DAYS?AMOUNT: 2 MILLIGRAM
     Route: 048
  3. BENZTROPINE [Suspect]
     Active Substance: BENZTROPINE
     Indication: Extrapyramidal disorder
     Route: 065
  4. CLONAZEPAM [Concomitant]
     Active Substance: CLONAZEPAM
     Indication: Anxiety
     Dosage: 4 EVERY 1 DAYS?AMOUNT: 0.5 MILLIGRAM?TABLETS DOSAGE FORM
     Route: 048
  5. CLOZARIL [Suspect]
     Active Substance: CLOZAPINE
     Indication: Product used for unknown indication
     Dosage: TABLETS DOSAGE FORM
     Route: 065
  6. HYDROMORPHONE [Suspect]
     Active Substance: HYDROMORPHONE
     Indication: Arthralgia
     Dosage: AMOUNT: 400 MILLIGRAM
     Route: 065
  7. HYDROMORPHONE [Suspect]
     Active Substance: HYDROMORPHONE
     Indication: Arthralgia
     Dosage: 4 EVERY 1 DAYS?AMOUNT: 4 MILLIGRAM?NOT SPECIFIED DOSAGE FORM
     Route: 048
  8. ZUCLOPENTHIXOL ACETATE [Suspect]
     Active Substance: ZUCLOPENTHIXOL ACETATE
     Indication: Schizophrenia
     Dosage: 1 EVERY 1 WEEKS?AMOUNT: 50 MILLIGRAM
     Route: 065
  9. ZUCLOPENTHIXOL ACETATE [Suspect]
     Active Substance: ZUCLOPENTHIXOL ACETATE
     Indication: Schizophrenia
     Dosage: 1 EVERY 1 WEEKS?AMOUNT: 75 MILLIGRAM
     Route: 030

REACTIONS (14)
  - Balance disorder [Recovered/Resolved]
  - Confusional state [Recovered/Resolved]
  - Dizziness [Recovered/Resolved]
  - Dizziness postural [Recovered/Resolved]
  - Feeling abnormal [Recovered/Resolved]
  - Hallucination, auditory [Recovered/Resolved]
  - Hypersomnia [Recovered/Resolved]
  - Memory impairment [Recovered/Resolved]
  - Oculogyric crisis [Recovered/Resolved]
  - Sedation [Recovered/Resolved]
  - Somnambulism [Recovered/Resolved]
  - Urinary incontinence [Recovered/Resolved]
  - Vision blurred [Recovered/Resolved]
  - Visual impairment [Recovered/Resolved]
